FAERS Safety Report 25055822 (Version 3)
Quarter: 2025Q2

REPORT INFORMATION
  Report Type: Report from Study
  Country: US (occurrence: US)
  Receive Date: 20250309
  Receipt Date: 20250514
  Transmission Date: 20250717
  Serious: No
  Sender: ACADIA PHARMACEUTICALS
  Company Number: US-ACADIA PHARMACEUTICALS INC.-ACA-2025-PIM-002306

PATIENT

DRUGS (8)
  1. NUPLAZID [Suspect]
     Active Substance: PIMAVANSERIN TARTRATE
     Indication: Parkinson^s disease psychosis
     Dosage: 34 MILLIGRAM, QD
     Route: 048
     Dates: start: 20240210, end: 20250424
  2. ALPRAZOLAM [Concomitant]
     Active Substance: ALPRAZOLAM
  3. ALEVE [Concomitant]
     Active Substance: NAPROXEN SODIUM
  4. ATIVAN [Concomitant]
     Active Substance: LORAZEPAM
  5. LISINOPRIL [Concomitant]
     Active Substance: LISINOPRIL
  6. MELATONIN [Concomitant]
     Active Substance: MELATONIN
  7. VITAMIN B12 [Concomitant]
     Active Substance: CYANOCOBALAMIN
     Route: 060
  8. VITAMIN D3 [Concomitant]
     Active Substance: CHOLECALCIFEROL

REACTIONS (1)
  - Therapeutic product effect incomplete [Unknown]

NARRATIVE: CASE EVENT DATE: 20250401
